FAERS Safety Report 4286113-6 (Version None)
Quarter: 2004Q1

REPORT INFORMATION
  Report Type: 
  Country: None (occurrence: None)
  Receive Date: 20040120
  Receipt Date: 20030110
  Transmission Date: 20041129
  Serious: Yes (Other)
  Sender: FDA-Public Use
  Company Number: A03200201322

PATIENT
  Age: 73 Year
  Sex: Female

DRUGS (8)
  1. PLAVIX [Suspect]
     Indication: ANGIOPLASTY
     Dosage: 5 MG QD - ORAL
     Route: 048
     Dates: start: 20020901, end: 20021109
  2. ATORVASTATIN [Concomitant]
  3. ALENDRONATE SODIUM [Concomitant]
  4. DOCUSATE CALCIUM [Concomitant]
  5. EXCEDRIN ASPIRIN FREE [Concomitant]
  6. EXCEDRIN (MIGRAINE) [Concomitant]
  7. MULTIVITAMIN [Concomitant]
  8. OSCAL 500-D [Concomitant]

REACTIONS (5)
  - ASTHENIA [None]
  - CONTUSION [None]
  - DIZZINESS [None]
  - HAEMORRHAGE [None]
  - SYNCOPE [None]
